FAERS Safety Report 9361576 (Version 1)
Quarter: 2013Q2

REPORT INFORMATION
  Report Type: Report from Study
  Country: BR (occurrence: BR)
  Receive Date: 20130621
  Receipt Date: 20130621
  Transmission Date: 20140414
  Serious: Yes (Other)
  Sender: FDA-Public Use
  Company Number: PHHY2013BR064002

PATIENT
  Age: 60 Year
  Sex: Male

DRUGS (1)
  1. RITALIN LA [Suspect]
     Dosage: UNK UKN, UNK
     Dates: start: 2011, end: 2011

REACTIONS (2)
  - Cardiac murmur [Unknown]
  - Dyspnoea exertional [Unknown]
